FAERS Safety Report 5440477-6 (Version None)
Quarter: 2007Q3

REPORT INFORMATION
  Report Type: 
  Country: None (occurrence: None)
  Receive Date: 20070831
  Receipt Date: 20070821
  Transmission Date: 20080115
  Serious: Yes (Hospitalization)
  Sender: FDA-Public Use
  Company Number: NL-ROCHE-512784

PATIENT
  Age: 45 Year
  Sex: Female
  Weight: 65 kg

DRUGS (1)
  1. PEGASYS [Suspect]
     Indication: POLYCYTHAEMIA VERA
     Route: 058
     Dates: start: 20051120, end: 20070505

REACTIONS (4)
  - ARTHRALGIA [None]
  - DEPRESSION [None]
  - MALAISE [None]
  - PRURITUS [None]
